FAERS Safety Report 19123227 (Version 2)
Quarter: 2021Q2

REPORT INFORMATION
  Report Type: Spontaneous
  Country: SK (occurrence: SK)
  Receive Date: 20210412
  Receipt Date: 20210429
  Transmission Date: 20210717
  Serious: Yes (Death, Other)
  Sender: FDA-Public Use
  Company Number: SK-SEBELA IRELAND LIMITED-2021SEB00050

PATIENT
  Age: 33 Year
  Sex: Female

DRUGS (6)
  1. AZATHIOPRINE. [Suspect]
     Active Substance: AZATHIOPRINE
     Indication: COLITIS ULCERATIVE
     Dosage: UNK
     Route: 065
  2. AZATHIOPRINE. [Suspect]
     Active Substance: AZATHIOPRINE
     Dosage: 25 MG, 1X/DAY
     Route: 065
  3. MESALAZINE [Concomitant]
     Active Substance: MESALAMINE
     Route: 065
  4. PROGESTERONE. [Suspect]
     Active Substance: PROGESTERONE
     Indication: IN VITRO FERTILISATION
     Dosage: 400 MG, TWICE
     Route: 067
  5. ESTRADIOL. [Suspect]
     Active Substance: ESTRADIOL
     Indication: IN VITRO FERTILISATION
     Dosage: 3 MG, 1X/DAY
     Route: 048
  6. ESTRADIOL. [Suspect]
     Active Substance: ESTRADIOL
     Dosage: 6 MG, 1X/DAY
     Route: 048

REACTIONS (3)
  - COVID-19 [Fatal]
  - SARS-CoV-2 test false negative [Not Recovered/Not Resolved]
  - Pancytopenia [Not Recovered/Not Resolved]
